FAERS Safety Report 14510024 (Version 2)
Quarter: 2018Q1

REPORT INFORMATION
  Report Type: Report from Study
  Country: None (occurrence: NL)
  Receive Date: 20180209
  Receipt Date: 20180307
  Transmission Date: 20180509
  Serious: No
  Sender: FDA-Public Use
  Company Number: NL-ABBVIE-18K-114-2248306-00

PATIENT
  Sex: Female

DRUGS (1)
  1. DUODOPA [Suspect]
     Active Substance: CARBIDOPA\LEVODOPA
     Indication: PARKINSON^S DISEASE
     Dosage: MD 3, CD 1.8, ED 1
     Route: 050
     Dates: start: 20170712

REACTIONS (2)
  - Stoma site reaction [Not Recovered/Not Resolved]
  - Stoma site pain [Recovered/Resolved]
